FAERS Safety Report 4513330-X (Version None)
Quarter: 2004Q4

REPORT INFORMATION
  Report Type: 
  Country: None (occurrence: None)
  Receive Date: 20041130
  Receipt Date: 20040809
  Transmission Date: 20050328
  Serious: No
  Sender: FDA-Public Use
  Company Number: US-BRISTOL-MYERS SQUIBB COMPANY-12666509

PATIENT
  Age: 51 Year
  Sex: Female
  Weight: 78 kg

DRUGS (6)
  1. ERBITUX [Suspect]
     Indication: COLON CANCER METASTATIC
     Route: 042
  2. ANZEMET [Concomitant]
     Indication: PREMEDICATION
  3. ATROPINE [Concomitant]
     Indication: PREMEDICATION
  4. BENADRYL [Concomitant]
     Indication: PREMEDICATION
  5. DECADRON [Concomitant]
     Indication: PREMEDICATION
  6. CAMPTOSAR [Concomitant]
     Route: 042

REACTIONS (6)
  - EYE DISCHARGE [None]
  - EYE REDNESS [None]
  - EYELID MARGIN CRUSTING [None]
  - PRURITUS [None]
  - RASH ERYTHEMATOUS [None]
  - RASH PAPULAR [None]
